FAERS Safety Report 4277579-6 (Version None)
Quarter: 2004Q1

REPORT INFORMATION
  Report Type: 
  Country: None (occurrence: None)
  Receive Date: 20040122
  Receipt Date: 20031114
  Transmission Date: 20041129
  Serious: Yes (Death, Life-Threatening, Hospitalization, Other)
  Sender: FDA-Public Use
  Company Number: WAES 0311BEL00021

PATIENT
  Age: 41 Year
  Sex: Male
  Weight: 75 kg

DRUGS (11)
  1. ETHAMBUTOL HCL [Concomitant]
     Indication: RENAL ABSCESS
     Route: 048
     Dates: start: 19971125, end: 19980202
  2. ETHAMBUTOL HYDROCHLORIDE [Concomitant]
     Indication: MYCOBACTERIAL INFECTION
     Route: 048
     Dates: start: 19971125, end: 19980202
  3. CRIXIVAN [Suspect]
     Indication: HIV INFECTION
     Route: 048
     Dates: start: 19971125, end: 19980123
  4. ISONIAZID [Suspect]
     Indication: RENAL ABSCESS
     Route: 048
     Dates: start: 19971125, end: 19980202
  5. ISONIAZID [Suspect]
     Indication: MYCOBACTERIAL INFECTION
     Route: 048
     Dates: start: 19971125, end: 19980202
  6. LAMIVUDINE [Suspect]
     Indication: HIV INFECTION
     Route: 048
     Dates: start: 19971125, end: 19980123
  7. PYRAZINAMIDE [Concomitant]
     Indication: RENAL ABSCESS
     Route: 048
     Dates: start: 19971125, end: 19980202
  8. PYRAZINAMIDE [Concomitant]
     Indication: MYCOBACTERIAL INFECTION
     Route: 048
     Dates: start: 19971125, end: 19980202
  9. RIFAMPIN [Concomitant]
     Indication: RENAL ABSCESS
     Route: 048
     Dates: start: 19971125, end: 19980202
  10. RIFAMPIN [Concomitant]
     Indication: MYCOBACTERIAL INFECTION
     Route: 048
     Dates: start: 19971125, end: 19980202
  11. STAVUDINE [Suspect]
     Indication: HIV INFECTION
     Route: 048
     Dates: start: 19971125, end: 19980123

REACTIONS (13)
  - ASPHYXIA [None]
  - COMPLETED SUICIDE [None]
  - CONFUSIONAL STATE [None]
  - CONVULSION [None]
  - DEPRESSION [None]
  - MYCOBACTERIA URINE TEST POSITIVE [None]
  - NEPHRITIS INTERSTITIAL [None]
  - OEDEMA PERIPHERAL [None]
  - PARANOIA [None]
  - PULMONARY OEDEMA [None]
  - RENAL ABSCESS [None]
  - RENAL FAILURE [None]
  - RENAL INTERSTITIAL FIBROSIS [None]
